FAERS Safety Report 18948208 (Version 8)
Quarter: 2022Q1

REPORT INFORMATION
  Report Type: Report from Study
  Country: US (occurrence: US)
  Receive Date: 20210226
  Receipt Date: 20220328
  Transmission Date: 20220423
  Serious: Yes (Life-Threatening, Hospitalization, Disabling, Other)
  Sender: FDA-Public Use
  Company Number: US-GILEAD-2021-0514962

PATIENT
  Age: 61 Year
  Sex: Male

DRUGS (37)
  1. REMDESIVIR [Suspect]
     Active Substance: REMDESIVIR
     Indication: COVID-19
     Dosage: UNK, QD
     Route: 042
     Dates: start: 20201217
  2. INFLIXIMAB [Suspect]
     Active Substance: INFLIXIMAB
     Indication: COVID-19
     Dosage: UNK, ONCE
     Route: 042
     Dates: start: 20201217
  3. PLACEBO [Suspect]
     Active Substance: UNSPECIFIED INGREDIENT
     Indication: COVID-19
     Dosage: UNK, ONCE
     Route: 042
     Dates: start: 20201217
  4. APIXABAN [Concomitant]
     Active Substance: APIXABAN
  5. CYANOCOBALAMIN [Concomitant]
     Active Substance: CYANOCOBALAMIN
  6. DEXAMETHASONE [Concomitant]
     Active Substance: DEXAMETHASONE
  7. FLUOXETINE [Concomitant]
     Active Substance: FLUOXETINE HYDROCHLORIDE
  8. FUROSEMIDE [Concomitant]
     Active Substance: FUROSEMIDE
  9. GABAPENTIN [Concomitant]
     Active Substance: GABAPENTIN
  10. MELATONIN [Concomitant]
     Active Substance: MELATONIN
  11. ACETAMINOPHEN [Concomitant]
     Active Substance: ACETAMINOPHEN
  12. ALBUTEROL [Concomitant]
     Active Substance: ALBUTEROL
  13. BENZONATATE [Concomitant]
     Active Substance: BENZONATATE
  14. DEXTROMETHORPHAN HYDROBROMIDE AND GUAIFENESIN [Concomitant]
     Active Substance: DEXTROMETHORPHAN HYDROBROMIDE\GUAIFENESIN
  15. HYPOCHLOROUS ACID [Concomitant]
     Active Substance: HYPOCHLOROUS ACID
  16. KETOTIFEN FUMARATE [Concomitant]
     Active Substance: KETOTIFEN FUMARATE
  17. DOCUSATE SODIUM\SENNOSIDES A AND B [Concomitant]
     Active Substance: DOCUSATE SODIUM\SENNOSIDES A AND B
  18. GADOBUTROL [Concomitant]
     Active Substance: GADOBUTROL
  19. IOHEXOL [Concomitant]
     Active Substance: IOHEXOL
  20. LIDOCAINE [Concomitant]
     Active Substance: LIDOCAINE
  21. POLYETHYLENE GLYCOL 3350 [Concomitant]
     Active Substance: POLYETHYLENE GLYCOL 3350
  22. ONDANSETRON [Concomitant]
     Active Substance: ONDANSETRON
  23. OXYCODONE [Concomitant]
     Active Substance: OXYCODONE
  24. TRAMADOL HYDROCHLORIDE [Concomitant]
     Active Substance: TRAMADOL HYDROCHLORIDE
  25. CEFIXIME [Concomitant]
     Active Substance: CEFIXIME
  26. AZITHROMYCIN [Concomitant]
     Active Substance: AZITHROMYCIN
  27. CARVEDILOL [Concomitant]
     Active Substance: CARVEDILOL
  28. CEFEPIME HYDROCHLORIDE [Concomitant]
     Active Substance: CEFEPIME HYDROCHLORIDE
  29. DAPTOMYCIN [Concomitant]
     Active Substance: DAPTOMYCIN
  30. LISINOPRIL [Concomitant]
     Active Substance: LISINOPRIL
  31. MIDAZOLAM HYDROCHLORIDE [Concomitant]
     Active Substance: MIDAZOLAM HYDROCHLORIDE
  32. OXYCODONE HYDROCHLORIDE [Concomitant]
     Active Substance: OXYCODONE HYDROCHLORIDE
  33. ACETAMINOPHEN\OXYCODONE HYDROCHLORIDE [Concomitant]
     Active Substance: ACETAMINOPHEN\OXYCODONE HYDROCHLORIDE
  34. POTASSIUM CHLORIDE [Concomitant]
     Active Substance: POTASSIUM CHLORIDE
  35. SODIUM PICOSULFATE [Concomitant]
     Active Substance: SODIUM PICOSULFATE
  36. CEFTRIAXONE SODIUM [Concomitant]
     Active Substance: CEFTRIAXONE SODIUM
  37. GUAIFENESIN + DEXTROMETHORPANE HBR [Concomitant]

REACTIONS (4)
  - Bacteraemia [Not Recovered/Not Resolved]
  - Post-traumatic pain [Not Recovered/Not Resolved]
  - Urinary tract infection staphylococcal [Recovering/Resolving]
  - Osteomyelitis [Not Recovered/Not Resolved]

NARRATIVE: CASE EVENT DATE: 20210107
